FAERS Safety Report 5933894-9 (Version None)
Quarter: 2008Q4

REPORT INFORMATION
  Report Type: 
  Country: None (occurrence: None)
  Receive Date: 20081029
  Receipt Date: 20081027
  Transmission Date: 20090506
  Serious: Yes (Hospitalization)
  Sender: FDA-Public Use
  Company Number: DE-BRISTOL-MYERS SQUIBB COMPANY-14385454

PATIENT
  Age: 51 Year
  Sex: Female

DRUGS (2)
  1. CARBOPLATIN [Suspect]
     Indication: NEOPLASM MALIGNANT
     Route: 042
     Dates: start: 20081022, end: 20081022
  2. TOPOTECAN HCL [Suspect]
     Indication: NEOPLASM MALIGNANT
     Route: 042
     Dates: start: 20081020, end: 20081020

REACTIONS (2)
  - DYSPNOEA [None]
  - FLUSHING [None]
